FAERS Safety Report 22089235 (Version 1)
Quarter: 2023Q1

REPORT INFORMATION
  Report Type: Spontaneous
  Country: US (occurrence: US)
  Receive Date: 20230313
  Receipt Date: 20230313
  Transmission Date: 20230418
  Serious: No
  Sender: FDA-Public Use
  Company Number: US-PERRIGO-22US006388

PATIENT
  Sex: Male

DRUGS (2)
  1. NICOTINE POLACRILEX [Suspect]
     Active Substance: NICOTINE
     Indication: Feeling of relaxation
     Dosage: 4 MG, Q 1 TO 2 HOURS
     Route: 002
     Dates: start: 20220427, end: 20220428
  2. NICOTINE POLACRILEX [Suspect]
     Active Substance: NICOTINE
     Indication: Stress

REACTIONS (2)
  - Drug effect less than expected [Unknown]
  - Off label use [Recovered/Resolved]

NARRATIVE: CASE EVENT DATE: 20220427
